FAERS Safety Report 9139126 (Version 3)
Quarter: 2013Q4

REPORT INFORMATION
  Report Type: Spontaneous
  Country: US (occurrence: US)
  Receive Date: 20130305
  Receipt Date: 20131030
  Transmission Date: 20140711
  Serious: No
  Sender: FDA-Public Use
  Company Number: US-JNJFOC-20130203556

PATIENT
  Age: 61 Year
  Sex: Male
  Weight: 108.77 kg

DRUGS (3)
  1. STELARA [Suspect]
     Indication: PSORIASIS
     Route: 058
     Dates: start: 20100209, end: 20130204
  2. LUXIQ [Concomitant]
     Dosage: 2 WEEKS
     Route: 065
     Dates: start: 20130115
  3. VECTICAL [Concomitant]
     Route: 065

REACTIONS (1)
  - Tuberculin test positive [Recovering/Resolving]
